FAERS Safety Report 9991317 (Version 1)
Quarter: 2014Q1

REPORT INFORMATION
  Report Type: Spontaneous
  Country: BR (occurrence: BR)
  Receive Date: 20140310
  Receipt Date: 20140310
  Transmission Date: 20141002
  Serious: Yes (Disabling, Other)
  Sender: FDA-Public Use
  Company Number: BR-ELI_LILLY_AND_COMPANY-BR201402008831

PATIENT
  Age: 51 Year
  Sex: Male
  Weight: 100 kg

DRUGS (4)
  1. HUMULIN N [Suspect]
     Indication: TYPE 2 DIABETES MELLITUS
     Dosage: 30 IU, EACH MORNING
     Route: 065
     Dates: start: 2004
  2. HUMULIN N [Suspect]
     Dosage: 20 IU, EACH EVENING
     Route: 065
     Dates: start: 2004
  3. HUMULIN R [Suspect]
     Indication: TYPE 2 DIABETES MELLITUS
     Dosage: 6 IU, TID
     Route: 065
     Dates: start: 2004
  4. LOTAR                              /02225901/ [Concomitant]
     Indication: PRODUCT USED FOR UNKNOWN INDICATION
     Dosage: UNK, UNKNOWN
     Route: 065

REACTIONS (1)
  - Blindness [Not Recovered/Not Resolved]
